FAERS Safety Report 6801608-6 (Version None)
Quarter: 2010Q2

REPORT INFORMATION
  Report Type: 
  Country: None (occurrence: None)
  Receive Date: 20100629
  Receipt Date: 20100521
  Transmission Date: 20101027
  Serious: Yes (Other)
  Sender: FDA-Public Use
  Company Number: US-MERCK-1005USA03267

PATIENT
  Age: 46 Year
  Sex: Male

DRUGS (1)
  1. SINGULAIR [Suspect]
     Indication: HYPERSENSITIVITY
     Route: 048

REACTIONS (5)
  - APHONIA [None]
  - DECREASED APPETITE [None]
  - DYSPHAGIA [None]
  - GLOSSODYNIA [None]
  - STOMATITIS [None]
